FAERS Safety Report 17690391 (Version 2)
Quarter: 2020Q4

REPORT INFORMATION
  Report Type: Report from Study
  Country: None (occurrence: US)
  Receive Date: 20200421
  Receipt Date: 20201119
  Transmission Date: 20210113
  Serious: Yes (Other)
  Sender: FDA-Public Use
  Company Number: US-ABBVIE-19K-163-2933292-00

PATIENT
  Age: 57 Year
  Sex: Female

DRUGS (3)
  1. HUMIRA [Suspect]
     Active Substance: ADALIMUMAB
     Indication: PSORIATIC ARTHROPATHY
     Route: 058
  2. HUMIRA [Suspect]
     Active Substance: ADALIMUMAB
     Indication: PSORIASIS
     Route: 058
  3. METHOTREXATE. [Suspect]
     Active Substance: METHOTREXATE
     Indication: PRODUCT USED FOR UNKNOWN INDICATION
     Route: 065

REACTIONS (20)
  - Malaise [Unknown]
  - Procedural complication [Unknown]
  - Tendon pain [Unknown]
  - Joint dislocation [Unknown]
  - Papule [Unknown]
  - Arthritis [Unknown]
  - Dermal cyst [Unknown]
  - Bone development abnormal [Unknown]
  - Extremity contracture [Unknown]
  - Mental disorder [Unknown]
  - Osteomalacia [Unknown]
  - Device expulsion [Unknown]
  - Alopecia [Unknown]
  - Foot deformity [Unknown]
  - Foot fracture [Unknown]
  - Tendon disorder [Unknown]
  - Joint swelling [Unknown]
  - Osteoporosis [Unknown]
  - Psoriasis [Unknown]
  - Injection site pain [Unknown]

NARRATIVE: CASE EVENT DATE: 20200228
